FAERS Safety Report 19644492 (Version 2)
Quarter: 2021Q3

REPORT INFORMATION
  Report Type: Report from Study
  Country: BR (occurrence: BR)
  Receive Date: 20210801
  Receipt Date: 20210802
  Transmission Date: 20211014
  Serious: Yes (Other)
  Sender: FDA-Public Use
  Company Number: BR-JNJFOC-20210764375

PATIENT
  Age: 59 Year
  Sex: Female

DRUGS (1)
  1. SIMPONI [Suspect]
     Active Substance: GOLIMUMAB
     Indication: RHEUMATOID ARTHRITIS
     Route: 058
     Dates: start: 20210625

REACTIONS (1)
  - Hepatitis C [Unknown]

NARRATIVE: CASE EVENT DATE: 2021
